FAERS Safety Report 21170861 (Version 2)
Quarter: 2022Q3

REPORT INFORMATION
  Report Type: Report from Study
  Country: US (occurrence: US)
  Receive Date: 20220804
  Receipt Date: 20220825
  Transmission Date: 20221027
  Serious: Yes (Hospitalization)
  Sender: FDA-Public Use
  Company Number: US-PFIZER INC-PV202200035758

PATIENT
  Age: 61 Year
  Sex: Female
  Weight: 45.4 kg

DRUGS (21)
  1. GEMCITABINE HYDROCHLORIDE [Suspect]
     Active Substance: GEMCITABINE HYDROCHLORIDE
     Indication: Cholangiocarcinoma
     Dosage: 750 MG/M2
     Route: 042
     Dates: start: 20190618
  2. NUMIDARGISTAT [Suspect]
     Active Substance: NUMIDARGISTAT
     Indication: Cholangiocarcinoma
     Dosage: 100 MG, BID
     Route: 048
     Dates: start: 20190618, end: 20210204
  3. NUMIDARGISTAT [Suspect]
     Active Substance: NUMIDARGISTAT
     Dosage: 75 MG, BID
     Route: 048
     Dates: start: 20210312, end: 20210516
  4. NUMIDARGISTAT [Suspect]
     Active Substance: NUMIDARGISTAT
     Dosage: 75 MG, BID
     Route: 048
     Dates: start: 20210518, end: 20210603
  5. NUMIDARGISTAT [Suspect]
     Active Substance: NUMIDARGISTAT
     Dosage: 75 MG, BID
     Route: 048
     Dates: start: 20210608, end: 20210722
  6. NUMIDARGISTAT [Suspect]
     Active Substance: NUMIDARGISTAT
     Dosage: 75 MG, BID
     Route: 048
     Dates: start: 20210806
  7. ASCORBIC ACID [Concomitant]
     Active Substance: ASCORBIC ACID
     Dosage: UNK
     Dates: start: 20190325
  8. VITAMIN B COMPLEX [Concomitant]
     Active Substance: CYANOCOBALAMIN\DEXPANTHENOL\NIACINAMIDE\PYRIDOXINE HYDROCHLORIDE\RIBOFLAVIN 5^-PHOSPHATE SODIUM\THIA
     Dosage: UNK
     Dates: start: 20190325
  9. ZOFRAN [Concomitant]
     Active Substance: ONDANSETRON HYDROCHLORIDE
     Dosage: UNK
     Dates: start: 20190613
  10. SPIRONOLACTONE [Concomitant]
     Active Substance: SPIRONOLACTONE
     Dosage: UNK
     Dates: start: 20190521
  11. COMPAZINE [Concomitant]
     Active Substance: PROCHLORPERAZINE MALEATE
     Dosage: UNK
     Dates: start: 20190613
  12. ATIVAN [Concomitant]
     Active Substance: LORAZEPAM
     Dosage: UNK
     Dates: start: 20190613
  13. LOPERAMIDE HYDROCHLORIDE [Concomitant]
     Active Substance: LOPERAMIDE HYDROCHLORIDE
     Dosage: UNK
     Dates: start: 20190613
  14. LOPERAMIDE [Concomitant]
     Active Substance: LOPERAMIDE
     Dosage: UNK
     Dates: start: 20190613
  15. DOCUSATE [Concomitant]
     Active Substance: DOCUSATE
     Dosage: UNK
     Dates: start: 20190622
  16. SENNA [Concomitant]
     Active Substance: SENNA LEAF\SENNOSIDES\SENNOSIDES A AND B
     Dosage: UNK
     Dates: start: 20190622
  17. MIRALAX [Concomitant]
     Active Substance: POLYETHYLENE GLYCOL 3350
     Dosage: UNK
     Dates: start: 20190624
  18. ANUSOL [ATROPA BELLADONNA EXTRACT;BISMUTH TRIBROMOPHENATE;ZINC SULFATE [Concomitant]
     Dosage: UNK
     Dates: start: 20190624
  19. ENOXAPARIN [Concomitant]
     Active Substance: ENOXAPARIN
     Dosage: UNK
     Dates: start: 20200323
  20. COLACE [Concomitant]
     Active Substance: DOCUSATE SODIUM
     Dosage: UNK
     Dates: start: 20210604
  21. TRIAMCINOLONE [Concomitant]
     Active Substance: TRIAMCINOLONE
     Dosage: UNK
     Dates: start: 20220415

REACTIONS (4)
  - Peritonitis [Recovered/Resolved]
  - Jaundice cholestatic [Recovered/Resolved]
  - Bacteraemia [Recovered/Resolved]
  - Fatigue [Recovering/Resolving]

NARRATIVE: CASE EVENT DATE: 20220621
